FAERS Safety Report 19928032 (Version 1)
Quarter: 2021Q4

REPORT INFORMATION
  Report Type: Spontaneous
  Country: US (occurrence: US)
  Receive Date: 20211006
  Receipt Date: 20211006
  Transmission Date: 20220303
  Serious: Yes (Other)
  Sender: FDA-Public Use
  Company Number: None

PATIENT
  Age: 61 Year
  Sex: Male

DRUGS (9)
  1. FOSAPREPITANT [Suspect]
     Active Substance: FOSAPREPITANT
     Indication: Nausea
     Dosage: ?          OTHER FREQUENCY:ONCE PER CYCLE;
     Route: 042
     Dates: start: 20211001, end: 20211001
  2. FOSAPREPITANT [Suspect]
     Active Substance: FOSAPREPITANT
     Indication: Vomiting
  3. LORAZEPAM [Concomitant]
     Active Substance: LORAZEPAM
  4. Dexamethasone 12 mg [Concomitant]
  5. FAMOTIDINE [Concomitant]
     Active Substance: FAMOTIDINE
  6. Palonosetron 0.25 mg [Concomitant]
  7. Doxorubicin 108 mg [Concomitant]
  8. Cyclophosphamide 1080 mg [Concomitant]
  9. Pegfilgrastim 6 mg [Concomitant]

REACTIONS (3)
  - Feeling hot [None]
  - Chest discomfort [None]
  - Back pain [None]

NARRATIVE: CASE EVENT DATE: 20211001
